FAERS Safety Report 9645323 (Version 1)
Quarter: 2013Q4

REPORT INFORMATION
  Report Type: Spontaneous
  Country: BE (occurrence: BE)
  Receive Date: 20131025
  Receipt Date: 20131025
  Transmission Date: 20140711
  Serious: Yes (Death)
  Sender: FDA-Public Use
  Company Number: BE-ELI_LILLY_AND_COMPANY-BE201310006295

PATIENT
  Sex: Male

DRUGS (1)
  1. EFIENT [Suspect]
     Indication: ACUTE CORONARY SYNDROME
     Dosage: 60 MG, SINGLE LAODING DOSE
     Route: 048

REACTIONS (2)
  - Cerebral haemorrhage [Fatal]
  - Cerebral infarction [Fatal]
